FAERS Safety Report 14195490 (Version 1)
Quarter: 2017Q4

REPORT INFORMATION
  Report Type: Spontaneous
  Country: US (occurrence: None)
  Receive Date: 20171116
  Receipt Date: 20171116
  Transmission Date: 20180321
  Serious: No
  Sender: FDA-Public Use
  Company Number: None

PATIENT
  Age: 48 Year
  Sex: Female

DRUGS (6)
  1. BENADRYL [Concomitant]
     Active Substance: DIPHENHYDRAMINE HYDROCHLORIDE
  2. AMPYRA [Suspect]
     Active Substance: DALFAMPRIDINE
     Indication: MULTIPLE SCLEROSIS
     Route: 048
     Dates: start: 201311
  3. RITUXIMAB. [Concomitant]
     Active Substance: RITUXIMAB
  4. XALATAN OPHT DROP [Concomitant]
  5. PREDNISONE. [Concomitant]
     Active Substance: PREDNISONE
  6. TRIAMCINOLONE 0.1% TOP CREAM [Concomitant]

REACTIONS (3)
  - Urticaria [None]
  - Drug ineffective [None]
  - Pruritus [None]

NARRATIVE: CASE EVENT DATE: 20170803
